FAERS Safety Report 4383959-0 (Version None)
Quarter: 2004Q2

REPORT INFORMATION
  Report Type: 
  Country: None (occurrence: None)
  Receive Date: 20040621
  Receipt Date: 20040610
  Transmission Date: 20050107
  Serious: Yes (Other)
  Sender: FDA-Public Use
  Company Number: 310007M04USA

PATIENT
  Sex: Female

DRUGS (2)
  1. GONAL-F [Suspect]
     Indication: INFERTILITY
     Dosage: SUBCUTANEOUS
     Route: 058
  2. LUTROPIN ALFA [Suspect]
     Indication: INFERTILITY
     Dosage: SUBCUTANEOUS
     Route: 058

REACTIONS (1)
  - BREAST CANCER [None]
